FAERS Safety Report 6231711-3 (Version None)
Quarter: 2009Q2

REPORT INFORMATION
  Report Type: 
  Country: None (occurrence: None)
  Receive Date: 20090611
  Receipt Date: 20090519
  Transmission Date: 20091009
  Serious: Yes (Death, Hospitalization)
  Sender: FDA-Public Use
  Company Number: THQ2009A01084

PATIENT
  Age: 78 Year

DRUGS (12)
  1. LANSOPRAZOLE [Suspect]
     Dosage: 30 MG (30 MG, 1 IN 1 D) PER ORAL
     Route: 048
     Dates: start: 20050822
  2. CEFTRIAXONE [Suspect]
     Dosage: 1 G 1 X PER 1 TOT INTRAVENOUS
     Route: 042
     Dates: start: 20050923, end: 20050923
  3. TRIMETHOPRIM [Suspect]
     Dosage: 400 MG (200 MG, 2 IN 1 D) PER ORAL
     Route: 048
     Dates: start: 20050824, end: 20050825
  4. CODEINE PHOSPHATE AND ACETAMINOPHEN [Concomitant]
  5. AMLODIPINE [Concomitant]
  6. ALFACALCIDOL [Concomitant]
  7. SODIUM BICARBONATE [Concomitant]
  8. FUROSEMIDE [Concomitant]
  9. NEORECORMON (EPOETIN BETA) [Concomitant]
  10. FERROUS SULFATE TAB [Concomitant]
  11. CLOTRIMAZOLE [Concomitant]
  12. SANDO K (POTASSIUM CHOLORIDE) [Concomitant]

REACTIONS (17)
  - ACIDOSIS [None]
  - ASTHENIA [None]
  - BLOOD POTASSIUM DECREASED [None]
  - CANDIDIASIS [None]
  - CARDIOPULMONARY FAILURE [None]
  - CLOSTRIDIAL INFECTION [None]
  - CONDITION AGGRAVATED [None]
  - DECUBITUS ULCER [None]
  - DEHYDRATION [None]
  - FAECES DISCOLOURED [None]
  - FALL [None]
  - GENERAL PHYSICAL HEALTH DETERIORATION [None]
  - HAEMATEMESIS [None]
  - OSTEOMYELITIS [None]
  - RENAL FAILURE ACUTE [None]
  - SEPSIS [None]
  - URINARY TRACT INFECTION [None]
